FAERS Safety Report 6659682-6 (Version None)
Quarter: 2010Q1

REPORT INFORMATION
  Report Type: 
  Country: None (occurrence: None)
  Receive Date: 20100330
  Receipt Date: 20100318
  Transmission Date: 20100710
  Serious: Yes (Other)
  Sender: FDA-Public Use
  Company Number: US-PFIZER INC-2010035317

PATIENT
  Sex: Male

DRUGS (2)
  1. ZOLOFT [Suspect]
     Dosage: UNK MG, UNK
     Route: 048
  2. SERTRALINE HYDROCHLORIDE [Suspect]
     Dosage: UNK MG, UNK
     Route: 048
     Dates: start: 20000101, end: 20000101

REACTIONS (4)
  - HOMICIDAL IDEATION [None]
  - MEMORY IMPAIRMENT [None]
  - SUICIDAL IDEATION [None]
  - WITHDRAWAL SYNDROME [None]
